FAERS Safety Report 9182302 (Version 1)
Quarter: 2012Q4

REPORT INFORMATION
  Report Type: 
  Country: DE (occurrence: US)
  Receive Date: 20121030
  Receipt Date: 20121030
  Transmission Date: 20130627
  Serious: Yes (Hospitalization, Other)
  Sender: FDA-Public Use
  Company Number: US-GENZYME-LEUK-1000121

PATIENT
  Age: 64 Year
  Sex: Female
  Weight: 65.5 kg

DRUGS (5)
  1. LEUKINE [Suspect]
     Indication: MALIGNANT MELANOMA
     Dosage: 250 mcg, QD days 1-14
     Route: 058
     Dates: start: 20110427, end: 20110510
  2. LEUKINE [Suspect]
     Dosage: 250 mcg, qd
     Route: 058
     Dates: start: 20110713, end: 20110713
  3. IPILIMUMAB [Suspect]
     Indication: MALIGNANT MELANOMA
     Dosage: 10 mg/kg, on day 1
     Route: 042
     Dates: start: 20110427, end: 20110427
  4. IPILIMUMAB [Suspect]
     Dosage: 10 mg/kg, on day 1
     Route: 042
     Dates: start: 20110713, end: 20110713
  5. VICODIN [Concomitant]
     Indication: PRODUCT USED FOR UNKNOWN INDICATION
     Dosage: UNK
     Route: 065

REACTIONS (5)
  - Metastases to central nervous system [Unknown]
  - Convulsion [Recovered/Resolved]
  - Urticaria [Recovered/Resolved]
  - Pruritus [Recovered/Resolved]
  - Hypersensitivity [Recovered/Resolved]
